FAERS Safety Report 4294998-2 (Version None)
Quarter: 2004Q1

REPORT INFORMATION
  Report Type: 
  Country: None (occurrence: None)
  Receive Date: 20040212
  Receipt Date: 20040212
  Transmission Date: 20041129
  Serious: Yes (Hospitalization)
  Sender: FDA-Public Use
  Company Number: None

PATIENT
  Sex: Female
  Weight: 72.5755 kg

DRUGS (2)
  1. XELODA [Suspect]
     Indication: PANCREATIC CARCINOMA
     Dosage: 2000 MG/M2 /DAY
     Dates: start: 20040126, end: 20040206
  2. RADIATION [Suspect]
     Indication: PANCREATIC CARCINOMA
     Dosage: 50.46 MG 28 TR
     Dates: start: 20040126, end: 20040206

REACTIONS (3)
  - FOOD INTOLERANCE [None]
  - NAUSEA [None]
  - VOMITING [None]
